FAERS Safety Report 12650872 (Version 1)
Quarter: 2016Q3

REPORT INFORMATION
  Report Type: Spontaneous
  Country: US (occurrence: US)
  Receive Date: 20160815
  Receipt Date: 20160815
  Transmission Date: 20161109
  Serious: No
  Sender: FDA-Public Use
  Company Number: US-JAZZ-2016-US-004765

PATIENT
  Sex: Female

DRUGS (32)
  1. LEXAPRO [Concomitant]
     Active Substance: ESCITALOPRAM OXALATE
  2. MOBIC [Concomitant]
     Active Substance: MELOXICAM
  3. FERROUS SULFATE. [Concomitant]
     Active Substance: FERROUS SULFATE
  4. NEUPRO [Concomitant]
     Active Substance: ROTIGOTINE
  5. MEDROL [Concomitant]
     Active Substance: METHYLPREDNISOLONE
  6. BELVIQ [Concomitant]
     Active Substance: LORCASERIN HYDROCHLORIDE
  7. BUTRANS [Concomitant]
     Active Substance: BUPRENORPHINE
  8. DEXILANT [Concomitant]
     Active Substance: DEXLANSOPRAZOLE
  9. METHYLPHENIDATE. [Concomitant]
     Active Substance: METHYLPHENIDATE
  10. ZOFRAN [Concomitant]
     Active Substance: ONDANSETRON HYDROCHLORIDE
  11. HYDROCODONE / IBUPROFEN [Concomitant]
     Active Substance: HYDROCODONE BITARTRATE\IBUPROFEN
  12. DHEA [Concomitant]
     Active Substance: PRASTERONE
  13. XYREM [Suspect]
     Active Substance: SODIUM OXYBATE
     Indication: NARCOLEPSY
     Dosage: 2.25 G, BID
     Route: 048
     Dates: start: 201602, end: 2016
  14. CRESTOR [Concomitant]
     Active Substance: ROSUVASTATIN CALCIUM
  15. METHOTREXATE. [Concomitant]
     Active Substance: METHOTREXATE
  16. FOLIC ACID. [Concomitant]
     Active Substance: FOLIC ACID
  17. ALLEGRA [Concomitant]
     Active Substance: FEXOFENADINE HYDROCHLORIDE
  18. BACTRIM [Concomitant]
     Active Substance: SULFAMETHOXAZOLE\TRIMETHOPRIM
  19. ATENOLOL. [Concomitant]
     Active Substance: ATENOLOL
  20. FLEXERIL [Concomitant]
     Active Substance: CYCLOBENZAPRINE HYDROCHLORIDE
  21. LYRICA [Concomitant]
     Active Substance: PREGABALIN
  22. SALAGEN [Concomitant]
     Active Substance: PILOCARPINE HYDROCHLORIDE
  23. XYREM [Suspect]
     Active Substance: SODIUM OXYBATE
     Dosage: 3 G, BID
     Route: 048
     Dates: start: 2016
  24. PLAQUENIL [Concomitant]
     Active Substance: HYDROXYCHLOROQUINE SULFATE
  25. LASIX [Concomitant]
     Active Substance: FUROSEMIDE
  26. CYMBALTA [Concomitant]
     Active Substance: DULOXETINE HYDROCHLORIDE
  27. PLAVIX [Concomitant]
     Active Substance: CLOPIDOGREL BISULFATE
  28. SYNTHROID [Concomitant]
     Active Substance: LEVOTHYROXINE SODIUM
  29. METFORMIN [Concomitant]
     Active Substance: METFORMIN HYDROCHLORIDE
  30. POTASSIUM [Concomitant]
     Active Substance: POTASSIUM
  31. SPIRONOLACTONE. [Concomitant]
     Active Substance: SPIRONOLACTONE
  32. MAGNESIUM [Concomitant]
     Active Substance: MAGNESIUM

REACTIONS (1)
  - Infection [Unknown]
